FAERS Safety Report 6439467-6 (Version None)
Quarter: 2009Q4

REPORT INFORMATION
  Report Type: 
  Country: None (occurrence: None)
  Receive Date: 20091113
  Receipt Date: 20091104
  Transmission Date: 20100525
  Serious: No
  Sender: FDA-Public Use
  Company Number: US-JNJFOC-20091102080

PATIENT
  Sex: Female
  Weight: 58.97 kg

DRUGS (6)
  1. DURAGESIC-100 [Suspect]
     Route: 062
  2. DURAGESIC-100 [Suspect]
     Dosage: NDC#: 5045803605
     Route: 062
  3. DURAGESIC-100 [Suspect]
     Indication: BACK PAIN
     Dosage: NDC#: 5045803505
     Route: 062
  4. ACIPHEX [Concomitant]
     Indication: ULCER
     Route: 048
  5. KEPPRA [Concomitant]
     Indication: CONVULSION
     Route: 048
     Dates: start: 20060101
  6. NEURONTIN [Concomitant]
     Indication: CONVULSION
     Dosage: 300MG 3 TABLETS/DAY
     Route: 048
     Dates: start: 20060101

REACTIONS (3)
  - DRUG PRESCRIBING ERROR [None]
  - INAPPROPRIATE SCHEDULE OF DRUG ADMINISTRATION [None]
  - PAIN [None]
